FAERS Safety Report 24034369 (Version 1)
Quarter: 2024Q3

REPORT INFORMATION
  Report Type: Spontaneous
  Country: GB (occurrence: GB)
  Receive Date: 20240701
  Receipt Date: 20240701
  Transmission Date: 20241016
  Serious: Yes (Other)
  Sender: MICRO LABS
  Company Number: None

PATIENT
  Sex: Female
  Weight: 60 kg

DRUGS (2)
  1. LEVETIRACETAM [Suspect]
     Active Substance: LEVETIRACETAM
     Indication: Epilepsy
     Dosage: 250MG WITH INCREASE OF 250MG EVERY TWO WEEKS. STOPPED WHEN I GOT TO 500MG IN MORNING AND 250MG IN EV
     Dates: start: 20240311
  2. ZONISAMIDE [Concomitant]
     Active Substance: ZONISAMIDE
     Indication: Adverse drug reaction
     Dosage: WEANING OFF ZONISAMIDE DUE TO SAFETY IN PREGNANCY

REACTIONS (10)
  - Acne [Not Recovered/Not Resolved]
  - Heavy menstrual bleeding [Not Recovered/Not Resolved]
  - Menstruation delayed [Not Recovered/Not Resolved]
  - Mania [Not Recovered/Not Resolved]
  - Self esteem decreased [Not Recovered/Not Resolved]
  - Chills [Not Recovered/Not Resolved]
  - Paranoia [Not Recovered/Not Resolved]
  - Mood swings [Not Recovered/Not Resolved]
  - Anxiety [Not Recovered/Not Resolved]
  - Aggression [Not Recovered/Not Resolved]
